FAERS Safety Report 24097396 (Version 2)
Quarter: 2024Q3

REPORT INFORMATION
  Report Type: Spontaneous
  Country: CN (occurrence: CN)
  Receive Date: 20240716
  Receipt Date: 20240722
  Transmission Date: 20241016
  Serious: Yes (Other)
  Sender: PFIZER
  Company Number: CN-MLMSERVICE-20240704-PI123126-00329-1

PATIENT
  Age: 59 Year
  Sex: Female

DRUGS (8)
  1. FLUCONAZOLE [Suspect]
     Active Substance: FLUCONAZOLE
     Indication: Candida infection
     Dosage: UNK
  2. COLISTIN [Suspect]
     Active Substance: COLISTIN
     Indication: Pseudomonas infection
     Dosage: UNK
  3. VANCOMYCIN [Suspect]
     Active Substance: VANCOMYCIN
     Dosage: UNK
  4. ALBENDAZOLE [Concomitant]
     Active Substance: ALBENDAZOLE
     Indication: Hepatic echinococciasis
     Dosage: UNK
     Route: 048
  5. GLYCYRRHIZA GLABRA\HERBALS [Concomitant]
     Active Substance: GLYCYRRHIZA GLABRA\HERBALS
     Indication: Hepatic function abnormal
     Dosage: UNK
  6. GLYCYRRHIZA GLABRA\HERBALS [Concomitant]
     Active Substance: GLYCYRRHIZA GLABRA\HERBALS
     Indication: Condition aggravated
  7. ADENOSINE [Concomitant]
     Active Substance: ADENOSINE
     Indication: Hepatic function abnormal
     Dosage: UNK
  8. ADENOSINE [Concomitant]
     Active Substance: ADENOSINE
     Indication: Condition aggravated

REACTIONS (1)
  - Acute kidney injury [Unknown]
